FAERS Safety Report 9118048 (Version 1)
Quarter: 2013Q1

REPORT INFORMATION
  Report Type: Report from Study
  Country: US (occurrence: US)
  Receive Date: 20130129
  Receipt Date: 20130129
  Transmission Date: 20140127
  Serious: No
  Sender: FDA-Public Use
  Company Number: US-ABBOTT-12P-163-0943385-00

PATIENT
  Age: 49 Year
  Sex: Female

DRUGS (3)
  1. HUMIRA 40 MG/0.8 ML PEN [Suspect]
     Indication: CROHN^S DISEASE
     Dates: start: 201204
  2. AMBIEN [Concomitant]
     Indication: INSOMNIA
  3. UNKNOWN HEARTBURN MEDICATION [Concomitant]
     Indication: DYSPEPSIA
     Dosage: OTC AS NEEDED

REACTIONS (2)
  - Hot flush [Not Recovered/Not Resolved]
  - Nasopharyngitis [Unknown]
